FAERS Safety Report 21377267 (Version 1)
Quarter: 2022Q3

REPORT INFORMATION
  Report Type: Spontaneous
  Country: IT (occurrence: IT)
  Receive Date: 20220926
  Receipt Date: 20220926
  Transmission Date: 20221027
  Serious: Yes (Other)
  Sender: FDA-Public Use
  Company Number: None

PATIENT
  Age: 15 Day
  Sex: Female

DRUGS (2)
  1. FUROSEMIDE [Suspect]
     Active Substance: FUROSEMIDE
     Dosage: DOSAGE TEXT: THE PATIENT UNDERWENT TREATMENT WITH FUROSEMIDE FOR 3 DAYS, WHICH PROBABLY CONTRIBUTED
     Route: 065
     Dates: start: 20220824, end: 20220826
  2. HYDROCHLOROTHIAZIDE [Suspect]
     Active Substance: HYDROCHLOROTHIAZIDE
     Indication: Oedema
     Dosage: 1 MEQ/KG/DAY
     Route: 065
     Dates: start: 20220826, end: 20220826

REACTIONS (1)
  - Hyponatraemia [Recovering/Resolving]

NARRATIVE: CASE EVENT DATE: 20220826
